FAERS Safety Report 7721578-6 (Version None)
Quarter: 2011Q3

REPORT INFORMATION
  Report Type: 
  Country: None (occurrence: None)
  Receive Date: 20110831
  Receipt Date: 20110824
  Transmission Date: 20111222
  Serious: Yes (Other)
  Sender: FDA-Public Use
  Company Number: NZ-B.I. PHARMACEUTICALS,INC./RIDGEFIELD-2011-AU-00904AU

PATIENT
  Sex: Female

DRUGS (7)
  1. MYLANTA [Concomitant]
  2. PANTOPRAZOLE [Concomitant]
     Dates: start: 20110715
  3. OXYCONTIN [Concomitant]
     Dates: start: 20110715
  4. LAXSOL [Concomitant]
     Dates: start: 20110726
  5. PRADAXA [Suspect]
     Indication: ATRIAL FIBRILLATION
     Dosage: 220 MG
     Dates: start: 20110729, end: 20110731
  6. VALPROATE SODIUM [Concomitant]
     Dates: start: 20110715
  7. CILAZAPRIL [Concomitant]
     Dates: start: 20110715

REACTIONS (2)
  - DYSPEPSIA [None]
  - CARDIAC FIBRILLATION [None]
